FAERS Safety Report 7941509-3 (Version None)
Quarter: 2011Q4

REPORT INFORMATION
  Report Type: 
  Country: None (occurrence: None)
  Receive Date: 20111128
  Receipt Date: 20111116
  Transmission Date: 20120403
  Serious: Yes (Other)
  Sender: FDA-Public Use
  Company Number: GB-ASTELLAS-2011EU002437

PATIENT
  Sex: Female
  Weight: 19 kg

DRUGS (5)
  1. TACROLIMUS [Suspect]
     Indication: DERMATITIS ATOPIC
     Dosage: 0.03 %, BID
     Route: 061
     Dates: start: 20090116
  2. DERMOL SOL [Concomitant]
     Dosage: 500 UNK, PRN
     Route: 061
     Dates: start: 20080201
  3. EUMOVATE [Concomitant]
     Indication: DERMATITIS ATOPIC
     Dosage: UNK
     Route: 061
     Dates: start: 20080201
  4. DERMOL SOL [Concomitant]
     Indication: DERMATITIS ATOPIC
     Dosage: 600 UNK, PRN
     Route: 061
     Dates: start: 20080630
  5. EPADERM [Concomitant]
     Indication: DERMATITIS ATOPIC
     Dosage: UNK
     Route: 061
     Dates: start: 20071217

REACTIONS (1)
  - LYMPHADENOPATHY [None]
